FAERS Safety Report 14352095 (Version 3)
Quarter: 2024Q3

REPORT INFORMATION
  Report Type: Spontaneous
  Country: DE (occurrence: DE)
  Receive Date: 20180104
  Receipt Date: 20240715
  Transmission Date: 20241017
  Serious: Yes (Other)
  Sender: MYLAN
  Company Number: DE-TEVA-2017-DE-835948

PATIENT
  Age: 52 Year
  Sex: Female

DRUGS (5)
  1. MYCOPHENOLATE MOFETIL [Suspect]
     Active Substance: MYCOPHENOLATE MOFETIL
     Indication: Pemphigus
     Dosage: 3 G, QD (HIGH-DOSE CORTICOSTEROID)
     Route: 065
  2. PREDNISOLONE [Suspect]
     Active Substance: PREDNISOLONE
     Indication: Pemphigus
     Dosage: 80 MG, QD REDUCED TO 80MG/DAY AND AGAIN REDUCED
     Route: 065
  3. PREDNISOLONE [Suspect]
     Active Substance: PREDNISOLONE
     Dosage: 2 MG/KG BODY WEIGHT
     Route: 065
  4. PREDNISOLONE [Suspect]
     Active Substance: PREDNISOLONE
     Dosage: 200 MILLIGRAM, QD
     Route: 065
  5. PREDNISOLONE [Suspect]
     Active Substance: PREDNISOLONE
     Dosage: 20 MILLIGRAM DAILY; REDUCED TO 20 MG/DAY
     Route: 065

REACTIONS (7)
  - Condition aggravated [Recovering/Resolving]
  - Pemphigus [Recovering/Resolving]
  - Varicella zoster virus infection [Recovering/Resolving]
  - Atypical pneumonia [Recovering/Resolving]
  - Cytomegalovirus infection reactivation [Recovering/Resolving]
  - Infection reactivation [Recovering/Resolving]
  - Herpes simplex reactivation [Recovering/Resolving]
